FAERS Safety Report 8818963 (Version 2)
Quarter: 2012Q4

REPORT INFORMATION
  Report Type: 
  Country: US (occurrence: US)
  Receive Date: 20121001
  Receipt Date: 20121101
  Transmission Date: 20130627
  Serious: No
  Sender: FDA-Public Use
  Company Number: PHEH2012US019008

PATIENT
  Age: 81 Year
  Sex: Female

DRUGS (4)
  1. TASIGNA [Suspect]
     Indication: RECTAL CANCER
     Dosage: 300 mg, BID
     Route: 048
     Dates: start: 20120806
  2. ADVAIR [Concomitant]
  3. SINGULAIR [Concomitant]
  4. SYNTHROID [Concomitant]

REACTIONS (4)
  - Rash [Recovering/Resolving]
  - Nausea [Recovering/Resolving]
  - Abdominal discomfort [Recovering/Resolving]
  - Gastritis [Unknown]
